FAERS Safety Report 9740129 (Version 2)
Quarter: 2014Q1

REPORT INFORMATION
  Report Type: Spontaneous
  Country: US (occurrence: US)
  Receive Date: 20131209
  Receipt Date: 20140324
  Transmission Date: 20141002
  Serious: Yes (Death, Other)
  Sender: FDA-Public Use
  Company Number: US-UCBSA-104692

PATIENT
  Age: 73 Year
  Sex: Male
  Weight: 45.35 kg

DRUGS (2)
  1. VIMPAT [Suspect]
     Indication: CONVULSION
     Route: 048
     Dates: start: 201303
  2. COUMADIN [Concomitant]
     Indication: PROPHYLAXIS
     Dosage: UNKNOWN DOSE
     Dates: start: 2013

REACTIONS (2)
  - Death [Fatal]
  - Thrombosis [Unknown]
